FAERS Safety Report 19246739 (Version 1)
Quarter: 2021Q2

REPORT INFORMATION
  Report Type: Spontaneous
  Country: US (occurrence: US)
  Receive Date: 20210512
  Receipt Date: 20210512
  Transmission Date: 20210717
  Serious: Yes (Hospitalization, Disabling)
  Sender: FDA-Public Use
  Company Number: None

PATIENT
  Age: 28 Year
  Sex: Male
  Weight: 73.35 kg

DRUGS (1)
  1. MONTELUKAST [Suspect]
     Active Substance: MONTELUKAST SODIUM
     Indication: MULTIPLE ALLERGIES
     Dates: start: 20190825, end: 20200301

REACTIONS (7)
  - Crying [None]
  - Nightmare [None]
  - Feeling abnormal [None]
  - Fatigue [None]
  - Near death experience [None]
  - Confusional state [None]
  - Screaming [None]

NARRATIVE: CASE EVENT DATE: 20200301
